FAERS Safety Report 4319331-9 (Version None)
Quarter: 2004Q1

REPORT INFORMATION
  Report Type: 
  Country: None (occurrence: None)
  Receive Date: 20040316
  Receipt Date: 20040305
  Transmission Date: 20041129
  Serious: No
  Sender: FDA-Public Use
  Company Number: 2004UW04321

PATIENT
  Age: 32 Year
  Sex: 0

DRUGS (7)
  1. SEROQUEL [Suspect]
     Dosage: 400 MG DAILY PO
     Route: 048
  2. VALPROIC ACID [Suspect]
  3. CISAPRIDE [Concomitant]
  4. HALDOL [Concomitant]
  5. PAXIL [Concomitant]
  6. LOSEC [Concomitant]
  7. CLOZARIL [Concomitant]

REACTIONS (1)
  - PANCREATITIS NECROTISING [None]
